FAERS Safety Report 6387370-2 (Version None)
Quarter: 2009Q3

REPORT INFORMATION
  Report Type: 
  Country: None (occurrence: None)
  Receive Date: 20090930
  Receipt Date: 20090914
  Transmission Date: 20100115
  Serious: Yes (Hospitalization)
  Sender: FDA-Public Use
  Company Number: 2008AL011633

PATIENT
  Age: 67 Year
  Sex: Male

DRUGS (43)
  1. DIGOXIN [Suspect]
     Indication: CARDIAC DISORDER
     Dosage: 0.125MG, DAILY, PO
     Route: 048
  2. AMIODARONE [Concomitant]
  3. CORDARONE [Concomitant]
  4. BIAXIN [Concomitant]
  5. COUMADIN [Concomitant]
  6. DIAZEPAM [Concomitant]
  7. HUMIBID [Concomitant]
  8. ASPIRIN [Concomitant]
  9. SOTALOL [Concomitant]
  10. COZAAR [Concomitant]
  11. SPIRONOLACTONE [Concomitant]
  12. ISOPTIN [Concomitant]
  13. HYDROXYZINE [Concomitant]
  14. CLONAZEPAM [Concomitant]
  15. WARFARIN SODIUM [Concomitant]
  16. VERAPAMIL [Concomitant]
  17. LOVASTATIN [Concomitant]
  18. DYPHYLLINE-GG [Concomitant]
  19. ALPHAGAN [Concomitant]
  20. OXYCODONE HCL AND ACETAMINOPHEN [Concomitant]
  21. FLOMAX [Concomitant]
  22. TRAMADOL HCL [Concomitant]
  23. CITALOPRAM HYDROBROMIDE [Concomitant]
  24. BUSIPRONE [Concomitant]
  25. PROAIR HFA [Concomitant]
  26. SIMVASTATIN [Concomitant]
  27. TEMAZEPAM [Concomitant]
  28. SYNTHROID [Concomitant]
  29. PRAVACHOL [Concomitant]
  30. PROPO-N/APAP [Concomitant]
  31. AMBIEN [Concomitant]
  32. FUROSEMIDE [Concomitant]
  33. K-DUR [Concomitant]
  34. APAP W/ CODEINE [Concomitant]
  35. CELEBREX [Concomitant]
  36. NEURONTIN [Concomitant]
  37. BACLOFEN [Concomitant]
  38. ULTRAM [Concomitant]
  39. DEPAKOTE [Concomitant]
  40. ROXICET [Concomitant]
  41. VICOPROFEN [Concomitant]
  42. POTASSIUM CHLORIDE [Concomitant]
  43. ZITHROMAX [Concomitant]

REACTIONS (13)
  - ANXIETY [None]
  - ARRHYTHMIA [None]
  - ATRIAL TACHYCARDIA [None]
  - CHEST PAIN [None]
  - DIZZINESS [None]
  - DYSPNOEA [None]
  - ECONOMIC PROBLEM [None]
  - FALL [None]
  - MULTIPLE INJURIES [None]
  - NAUSEA [None]
  - PAIN [None]
  - TACHYCARDIA [None]
  - UNEVALUABLE EVENT [None]
